FAERS Safety Report 5907692-6 (Version None)
Quarter: 2008Q4

REPORT INFORMATION
  Report Type: 
  Country: None (occurrence: None)
  Receive Date: 20081003
  Receipt Date: 20021031
  Transmission Date: 20090506
  Serious: Yes (Death)
  Sender: FDA-Public Use
  Company Number: JP-ROCHE-324551

PATIENT
  Sex: Female

DRUGS (1)
  1. ROCEPHIN [Suspect]
     Indication: PNEUMONIA
     Dosage: IV DRIP
     Route: 042
     Dates: start: 20021016, end: 20021023

REACTIONS (2)
  - DISEASE PROGRESSION [None]
  - HEPATIC FUNCTION ABNORMAL [None]
